FAERS Safety Report 23203533 (Version 1)
Quarter: 2023Q4

REPORT INFORMATION
  Report Type: Spontaneous
  Country: US (occurrence: None)
  Receive Date: 20231119
  Receipt Date: 20231119
  Transmission Date: 20240110
  Serious: Yes (Hospitalization, Other)
  Sender: FDA-Public Use
  Company Number: None

PATIENT
  Age: 45 Year
  Sex: Female
  Weight: 57.6 kg

DRUGS (1)
  1. VITAMIN D2 [Suspect]
     Active Substance: ERGOCALCIFEROL
     Indication: Vitamin D decreased

REACTIONS (8)
  - Asthenia [None]
  - Pain [None]
  - Decreased appetite [None]
  - Dizziness [None]
  - Flank pain [None]
  - Muscle spasms [None]
  - Paraesthesia [None]
  - Pallor [None]

NARRATIVE: CASE EVENT DATE: 20231021
